FAERS Safety Report 5162382-5 (Version None)
Quarter: 2006Q4

REPORT INFORMATION
  Report Type: 
  Country: None (occurrence: None)
  Receive Date: 20061127
  Receipt Date: 20061127
  Transmission Date: 20070319
  Serious: Yes (Other)
  Sender: FDA-Public Use
  Company Number: None

PATIENT
  Age: 7 Year
  Sex: Male
  Weight: 29.4838 kg

DRUGS (1)
  1. PROMETHAZINE [Suspect]
     Indication: VOMITING
     Dosage: 1/2 TABLET 12.5 8 HRS AS NEEDED PO
     Route: 048
     Dates: start: 20061115, end: 20061115

REACTIONS (3)
  - CONVULSION [None]
  - LOSS OF CONSCIOUSNESS [None]
  - SOMNOLENCE [None]
